FAERS Safety Report 21341306 (Version 4)
Quarter: 2025Q2

REPORT INFORMATION
  Report Type: Spontaneous
  Country: JP (occurrence: JP)
  Receive Date: 20220916
  Receipt Date: 20250604
  Transmission Date: 20250716
  Serious: Yes (Other)
  Sender: ALEXION PHARMACEUTICALS
  Company Number: 2022A315923

PATIENT
  Age: 60 Year

DRUGS (5)
  1. TAGRISSO [Suspect]
     Active Substance: OSIMERTINIB
     Indication: Non-small cell lung cancer
     Dosage: 80 MILLIGRAM, QD
  2. Comirnaty [Concomitant]
     Route: 065
  3. RINDERON VG [Concomitant]
     Active Substance: BETAMETHASONE VALERATE\GENTAMICIN SULFATE
     Dosage: UNKNOWN
     Route: 065
  4. Myser [Concomitant]
     Route: 065
  5. TAGRISSO [Suspect]
     Active Substance: OSIMERTINIB
     Indication: Non-small cell lung cancer
     Dosage: 80 MILLIGRAM, QD

REACTIONS (16)
  - Seizure [Recovered/Resolved]
  - Dysarthria [Recovered/Resolved]
  - Chillblains [Unknown]
  - Paronychia [Recovering/Resolving]
  - Dry skin [Recovering/Resolving]
  - Pruritus [Not Recovered/Not Resolved]
  - Alopecia [Unknown]
  - Jaw disorder [Unknown]
  - Salivary hypersecretion [Unknown]
  - Vision blurred [Unknown]
  - Urticaria [Unknown]
  - Dental caries [Unknown]
  - Dyspnoea exertional [Unknown]
  - Pain in extremity [Unknown]
  - Peripheral swelling [Unknown]
  - Muscle spasms [Unknown]
